FAERS Safety Report 23771866 (Version 1)
Quarter: 2024Q2

REPORT INFORMATION
  Report Type: Spontaneous
  Country: BR (occurrence: BR)
  Receive Date: 20240423
  Receipt Date: 20240423
  Transmission Date: 20240716
  Serious: Yes (Life-Threatening, Hospitalization, Other)
  Sender: FDA-Public Use
  Company Number: BR-BEH-2024170642

PATIENT
  Age: 46 Year
  Sex: Female
  Weight: 89 kg

DRUGS (2)
  1. PRIVIGEN [Suspect]
     Active Substance: HUMAN IMMUNOGLOBULIN G
     Indication: Immunodeficiency
     Dosage: 17 VIALS, TOT
     Route: 042
     Dates: start: 20201209
  2. PRIVIGEN [Suspect]
     Active Substance: HUMAN IMMUNOGLOBULIN G
     Indication: Myasthenia gravis

REACTIONS (15)
  - Hyponatraemia [Recovered/Resolved with Sequelae]
  - Back pain [Recovered/Resolved with Sequelae]
  - Decreased appetite [Recovered/Resolved with Sequelae]
  - Walking disability [Recovered/Resolved with Sequelae]
  - Depressed level of consciousness [Unknown]
  - Near death experience [Unknown]
  - Hallucination [Unknown]
  - Malaise [Unknown]
  - Arthralgia [Unknown]
  - Thirst [Unknown]
  - Headache [Unknown]
  - Ill-defined disorder [Unknown]
  - Panic disorder [Unknown]
  - Depression [Unknown]
  - Borderline personality disorder [Unknown]

NARRATIVE: CASE EVENT DATE: 20201201
